FAERS Safety Report 6952172-2 (Version None)
Quarter: 2010Q3

REPORT INFORMATION
  Report Type: 
  Country: None (occurrence: None)
  Receive Date: 20100829
  Receipt Date: 20100720
  Transmission Date: 20110219
  Serious: No
  Sender: FDA-Public Use
  Company Number: US-ABBOTT-08P-163-0464166-00

PATIENT
  Sex: Male
  Weight: 83.99 kg

DRUGS (10)
  1. NIASPAN [Suspect]
     Indication: HIGH DENSITY LIPOPROTEIN DECREASED
     Route: 048
     Dates: start: 20080707
  2. NIASPAN [Suspect]
     Route: 048
     Dates: start: 20080721
  3. CAPTOPRIL [Concomitant]
     Indication: HYPERTENSION
  4. LORAZEPAM [Concomitant]
     Indication: ANXIETY
  5. LORAZEPAM [Concomitant]
     Indication: PANIC ATTACK
  6. ASPIRIN [Concomitant]
     Indication: CEREBROVASCULAR ACCIDENT
  7. PREVACID [Concomitant]
     Indication: ULCER
  8. ANDROGEL [Concomitant]
     Indication: BLOOD TESTOSTERONE DECREASED
  9. LIPITOR [Concomitant]
     Indication: BLOOD CHOLESTEROL INCREASED
  10. UNKNOWN BLOOD PRESSURE MEDICATION [Concomitant]
     Indication: HYPERTENSION

REACTIONS (3)
  - BURNING SENSATION [None]
  - FLUSHING [None]
  - PARAESTHESIA [None]
